FAERS Safety Report 12517115 (Version 2)
Quarter: 2016Q3

REPORT INFORMATION
  Report Type: Report from Study
  Country: GB (occurrence: GB)
  Receive Date: 20160630
  Receipt Date: 20160706
  Transmission Date: 20161109
  Serious: Yes (Death)
  Sender: FDA-Public Use
  Company Number: GB-PFIZER INC-2016320052

PATIENT
  Age: 40 Year
  Sex: Female

DRUGS (24)
  1. CODEINE [Interacting]
     Active Substance: CODEINE
     Indication: NEURALGIA
     Dosage: UNK
  2. BUPRENORPHINE. [Interacting]
     Active Substance: BUPRENORPHINE
     Indication: NEURALGIA
     Dosage: UNK
  3. METHADONE [Interacting]
     Active Substance: METHADONE HYDROCHLORIDE
     Indication: NEURALGIA
     Dosage: UNK
  4. BUPRENORPHINE. [Interacting]
     Active Substance: BUPRENORPHINE
     Indication: EPILEPSY
  5. BUPRENORPHINE. [Interacting]
     Active Substance: BUPRENORPHINE
     Indication: GENERALISED ANXIETY DISORDER
  6. METHADONE [Interacting]
     Active Substance: METHADONE HYDROCHLORIDE
     Indication: GENERALISED ANXIETY DISORDER
  7. PREGABALIN. [Suspect]
     Active Substance: PREGABALIN
     Indication: NEURALGIA
     Dosage: 300 MG, UNK
  8. SERTRALINE HCL [Interacting]
     Active Substance: SERTRALINE HYDROCHLORIDE
     Indication: NEURALGIA
     Dosage: UNK
  9. FLUOXETINE [Interacting]
     Active Substance: FLUOXETINE HYDROCHLORIDE
     Indication: NEURALGIA
     Dosage: UNK
  10. AMITRIPTYLINE [Interacting]
     Active Substance: AMITRIPTYLINE
     Indication: NEURALGIA
     Dosage: UNK
  11. METHADONE [Interacting]
     Active Substance: METHADONE HYDROCHLORIDE
     Indication: EPILEPSY
  12. CODEINE [Interacting]
     Active Substance: CODEINE
     Indication: EPILEPSY
  13. DIAZEPAM. [Interacting]
     Active Substance: DIAZEPAM
     Indication: EPILEPSY
  14. AMITRIPTYLINE [Interacting]
     Active Substance: AMITRIPTYLINE
     Indication: GENERALISED ANXIETY DISORDER
  15. PREGABALIN. [Interacting]
     Active Substance: PREGABALIN
     Indication: EPILEPSY
  16. FLUOXETINE [Interacting]
     Active Substance: FLUOXETINE HYDROCHLORIDE
     Indication: EPILEPSY
  17. DIAZEPAM. [Interacting]
     Active Substance: DIAZEPAM
     Indication: NEURALGIA
     Dosage: UNK
  18. SERTRALINE HCL [Interacting]
     Active Substance: SERTRALINE HYDROCHLORIDE
     Indication: GENERALISED ANXIETY DISORDER
  19. DIAZEPAM. [Interacting]
     Active Substance: DIAZEPAM
     Indication: GENERALISED ANXIETY DISORDER
  20. PREGABALIN. [Interacting]
     Active Substance: PREGABALIN
     Indication: GENERALISED ANXIETY DISORDER
  21. SERTRALINE HCL [Interacting]
     Active Substance: SERTRALINE HYDROCHLORIDE
     Indication: EPILEPSY
  22. CODEINE [Interacting]
     Active Substance: CODEINE
     Indication: GENERALISED ANXIETY DISORDER
  23. FLUOXETINE [Interacting]
     Active Substance: FLUOXETINE HYDROCHLORIDE
     Indication: GENERALISED ANXIETY DISORDER
  24. AMITRIPTYLINE [Interacting]
     Active Substance: AMITRIPTYLINE
     Indication: EPILEPSY

REACTIONS (4)
  - Pulmonary oedema [Fatal]
  - Drug interaction [Fatal]
  - Brain oedema [Fatal]
  - Toxicity to various agents [Fatal]
